FAERS Safety Report 6336790-0 (Version None)
Quarter: 2009Q3

REPORT INFORMATION
  Report Type: 
  Country: None (occurrence: None)
  Receive Date: 20090831
  Receipt Date: 20090831
  Transmission Date: 20100115
  Serious: Yes (Other)
  Sender: FDA-Public Use
  Company Number: None

PATIENT
  Sex: Female
  Weight: 55.1 kg

DRUGS (7)
  1. TAXOTERE [Suspect]
     Indication: ADJUVANT THERAPY
     Dosage: 115MG Q21DAYS IV DRIP 1ST DOSE-8/7 2ND-8/28
     Route: 041
  2. TAXOTERE [Suspect]
     Indication: BREAST CANCER
     Dosage: 115MG Q21DAYS IV DRIP 1ST DOSE-8/7 2ND-8/28
     Route: 041
  3. TAXOTERE [Suspect]
     Dosage: 115MG Q21DAYS IV DRIP
     Route: 041
  4. PROCHLORPERAZINE [Concomitant]
  5. DEXAMETHASONE [Concomitant]
  6. TAXOTERE [Concomitant]
  7. ALOXI [Concomitant]

REACTIONS (4)
  - ANXIETY [None]
  - DIZZINESS [None]
  - FLUSHING [None]
  - VISUAL IMPAIRMENT [None]
